FAERS Safety Report 13951860 (Version 4)
Quarter: 2017Q4

REPORT INFORMATION
  Report Type: Report from Study
  Country: US (occurrence: US)
  Receive Date: 20170908
  Receipt Date: 20171219
  Transmission Date: 20180320
  Serious: Yes (Hospitalization)
  Sender: FDA-Public Use
  Company Number: US-ACTELION-A-US2017-150659

PATIENT
  Age: 50 Year
  Sex: Female

DRUGS (14)
  1. REVATIO [Concomitant]
     Active Substance: SILDENAFIL CITRATE
  2. AMLODIPINE [Concomitant]
     Active Substance: AMLODIPINE BESYLATE
  3. ENBREL [Concomitant]
     Active Substance: ETANERCEPT
  4. OPSUMIT [Suspect]
     Active Substance: MACITENTAN
     Indication: PULMONARY ARTERIAL HYPERTENSION
     Dosage: 10 MG, QD
     Route: 048
     Dates: start: 20160831
  5. OXYGEN. [Concomitant]
     Active Substance: OXYGEN
  6. ORENITRAM [Concomitant]
     Active Substance: TREPROSTINIL
  7. ETODOLAC. [Concomitant]
     Active Substance: ETODOLAC
  8. LEVOTHYROXINE. [Concomitant]
     Active Substance: LEVOTHYROXINE
  9. PROPRANOLOL [Concomitant]
     Active Substance: PROPRANOLOL HYDROCHLORIDE
  10. LEFLUNOMIDE. [Concomitant]
     Active Substance: LEFLUNOMIDE
  11. PRILOSEC [Concomitant]
     Active Substance: OMEPRAZOLE MAGNESIUM
  12. MELOXICAM. [Concomitant]
     Active Substance: MELOXICAM
  13. LOSARTAN. [Concomitant]
     Active Substance: LOSARTAN
  14. FUROSEMIDE. [Concomitant]
     Active Substance: FUROSEMIDE

REACTIONS (18)
  - Dyspnoea exertional [Not Recovered/Not Resolved]
  - Dyspnoea [Unknown]
  - Hypoxia [Unknown]
  - Condition aggravated [Recovered/Resolved]
  - Syncope [Recovered/Resolved]
  - Tunnel vision [Unknown]
  - Dizziness [Unknown]
  - Abdominal distension [Unknown]
  - Headache [Unknown]
  - Nausea [Unknown]
  - Weight increased [Unknown]
  - Oxygen saturation abnormal [Unknown]
  - Nasal congestion [Unknown]
  - Fluid overload [Unknown]
  - Decreased appetite [Unknown]
  - Chest discomfort [Unknown]
  - Oxygen consumption increased [Unknown]
  - Ear infection [Unknown]

NARRATIVE: CASE EVENT DATE: 20170104
